FAERS Safety Report 5283937-3 (Version None)
Quarter: 2007Q2

REPORT INFORMATION
  Report Type: 
  Country: None (occurrence: None)
  Receive Date: 20070402
  Receipt Date: 20070322
  Transmission Date: 20071010
  Serious: Yes (Hospitalization)
  Sender: FDA-Public Use
  Company Number: PK-PFIZER INC-2007022986

PATIENT
  Sex: Male
  Weight: 75 kg

DRUGS (1)
  1. FELDENE [Suspect]
     Indication: ARTHRALGIA
     Route: 048
     Dates: start: 20070101, end: 20070104

REACTIONS (1)
  - ATRIAL FIBRILLATION [None]
